FAERS Safety Report 9660173 (Version 1)
Quarter: 2013Q4

REPORT INFORMATION
  Report Type: Spontaneous
  Country: US (occurrence: US)
  Receive Date: 20131031
  Receipt Date: 20131031
  Transmission Date: 20140711
  Serious: No
  Sender: FDA-Public Use
  Company Number: US-PFIZER INC-2013311417

PATIENT
  Age: 51 Year
  Sex: Female
  Weight: 81.63 kg

DRUGS (2)
  1. CELEBREX [Suspect]
     Indication: PERIARTHRITIS
     Dosage: 200 MG, DAILY
     Dates: start: 20130927
  2. SYNTHROID [Concomitant]
     Indication: THYROID CANCER
     Dosage: 137 UG, DAILY

REACTIONS (1)
  - Rash [Not Recovered/Not Resolved]
